FAERS Safety Report 6966439-5 (Version None)
Quarter: 2010Q3

REPORT INFORMATION
  Report Type: 
  Country: None (occurrence: None)
  Receive Date: 20100906
  Receipt Date: 20100830
  Transmission Date: 20110219
  Serious: Yes (Other)
  Sender: FDA-Public Use
  Company Number: KR-BRISTOL-MYERS SQUIBB COMPANY-15268824

PATIENT
  Age: 32 Year
  Sex: Female

DRUGS (2)
  1. PACLITAXEL [Suspect]
     Indication: SQUAMOUS CELL CARCINOMA
     Dosage: 29 + 2 WEEKS OF GESTATION
  2. CARBOPLATIN [Suspect]
     Indication: SQUAMOUS CELL CARCINOMA
     Dosage: 1 DF= AUC 5  29 + 2 WEEKS OF GESTATION

REACTIONS (3)
  - CAESAREAN SECTION [None]
  - NORMAL NEWBORN [None]
  - PREGNANCY [None]
